FAERS Safety Report 8131374 (Version 4)
Quarter: 2012Q4

REPORT INFORMATION
  Report Type: 
  Country: CA (occurrence: CA)
  Receive Date: 20110912
  Receipt Date: 20121218
  Transmission Date: 20130627
  Serious: Yes (Hospitalization)
  Sender: FDA-Public Use
  Company Number: CA-GLAXOSMITHKLINE-A0922493A

PATIENT
  Age: 58 Year
  Sex: Female
  Weight: 82 kg

DRUGS (5)
  1. TYKERB [Suspect]
     Indication: BREAST CANCER METASTATIC
     Dosage: 1250MG Per day
     Route: 048
     Dates: start: 20110316
  2. XELODA [Suspect]
     Indication: PRODUCT USED FOR UNKNOWN INDICATION
     Dosage: 2000MG Twice per day
     Route: 065
     Dates: start: 20110313
  3. NORVASC [Concomitant]
     Route: 065
  4. TENORMIN [Concomitant]
     Dosage: 25MG Unknown
     Route: 065
  5. SEPTRA [Concomitant]
     Route: 065

REACTIONS (11)
  - Dehydration [Unknown]
  - Diarrhoea [Recovered/Resolved]
  - Rib fracture [Recovered/Resolved]
  - Pain [Recovering/Resolving]
  - Skin plaque [Not Recovered/Not Resolved]
  - Lung disorder [Recovering/Resolving]
  - Back pain [Unknown]
  - Balance disorder [Unknown]
  - Metastases to central nervous system [Unknown]
  - Fatigue [Unknown]
  - Muscular weakness [Unknown]
